FAERS Safety Report 24903460 (Version 1)
Quarter: 2025Q1

REPORT INFORMATION
  Report Type: Spontaneous
  Country: CA (occurrence: CA)
  Receive Date: 20250130
  Receipt Date: 20250130
  Transmission Date: 20250409
  Serious: Yes (Other)
  Sender: ROCHE
  Company Number: CA-002147023-NVSC2025CA010691

PATIENT
  Age: 25 Year
  Sex: Female

DRUGS (3)
  1. OMALIZUMAB [Suspect]
     Active Substance: OMALIZUMAB
     Indication: Asthma
     Dosage: 300 MG, Q2W
     Route: 050
  2. PREDNISONE [Concomitant]
     Active Substance: PREDNISONE
     Indication: Product used for unknown indication
     Route: 065
  3. TEZEPELUMAB [Concomitant]
     Active Substance: TEZEPELUMAB
     Indication: Product used for unknown indication
     Route: 065

REACTIONS (3)
  - Bronchitis [Unknown]
  - Seasonal allergy [Unknown]
  - Superinfection [Unknown]
